FAERS Safety Report 19211776 (Version 1)
Quarter: 2021Q2

REPORT INFORMATION
  Report Type: Spontaneous
  Country: US (occurrence: US)
  Receive Date: 20210504
  Receipt Date: 20210504
  Transmission Date: 20210717
  Serious: No
  Sender: FDA-Public Use
  Company Number: None

PATIENT
  Age: 52 Year
  Sex: Male
  Weight: 126 kg

DRUGS (15)
  1. METFORMIN [Concomitant]
     Active Substance: METFORMIN HYDROCHLORIDE
  2. SPIRIVA [Concomitant]
     Active Substance: TIOTROPIUM BROMIDE MONOHYDRATE
  3. CLONAZEPAM. [Concomitant]
     Active Substance: CLONAZEPAM
  4. ZETIA [Concomitant]
     Active Substance: EZETIMIBE
  5. VICTOZA [Suspect]
     Active Substance: LIRAGLUTIDE
     Indication: DIABETES MELLITUS
  6. OZEMPIC [Suspect]
     Active Substance: SEMAGLUTIDE
  7. HUMULIN R [Concomitant]
     Active Substance: INSULIN HUMAN
  8. FUROSEMIDE. [Concomitant]
     Active Substance: FUROSEMIDE
  9. TRULANCE [Concomitant]
     Active Substance: PLECANATIDE
  10. LOSARTAN. [Concomitant]
     Active Substance: LOSARTAN
  11. TRULICITY [Suspect]
     Active Substance: DULAGLUTIDE
  12. SULFASALAZINE. [Concomitant]
     Active Substance: SULFASALAZINE
  13. PANTOPRAZOLE [Concomitant]
     Active Substance: PANTOPRAZOLE
  14. MULTIVITAMIN [Concomitant]
     Active Substance: VITAMINS
  15. HYDROXYCHLOROQUINE [Concomitant]
     Active Substance: HYDROXYCHLOROQUINE

REACTIONS (11)
  - Flatulence [None]
  - Anxiety [None]
  - Chest pain [None]
  - Rash [None]
  - Constipation [None]
  - Pancreatic failure [None]
  - Abdominal distension [None]
  - Angioedema [None]
  - Raynaud^s phenomenon [None]
  - Chest discomfort [None]
  - Eosinopenia [None]

NARRATIVE: CASE EVENT DATE: 20130301
